FAERS Safety Report 18234040 (Version 1)
Quarter: 2020Q3

REPORT INFORMATION
  Report Type: Report from Study
  Country: BR (occurrence: BR)
  Receive Date: 20200904
  Receipt Date: 20200904
  Transmission Date: 20201103
  Serious: Yes (Other)
  Sender: FDA-Public Use
  Company Number: PHHY2019BR096480

PATIENT
  Age: 62 Year
  Sex: Male
  Weight: 90 kg

DRUGS (4)
  1. COSENTYX [Suspect]
     Active Substance: SECUKINUMAB
     Indication: SPONDYLITIS
     Dosage: UNK
     Route: 065
     Dates: start: 20190108
  2. COSENTYX [Suspect]
     Active Substance: SECUKINUMAB
     Dosage: UNK
     Route: 065
  3. VICK [Concomitant]
     Indication: PRODUCT USED FOR UNKNOWN INDICATION
     Dosage: UNK
     Route: 065
  4. COSENTYX [Suspect]
     Active Substance: SECUKINUMAB
     Dosage: UNK
     Route: 065
     Dates: start: 20190408

REACTIONS (27)
  - Cough [Recovered/Resolved]
  - Ageusia [Recovered/Resolved]
  - Eating disorder [Unknown]
  - Blood glucose abnormal [Recovered/Resolved]
  - COVID-19 [Recovered/Resolved]
  - Diabetes mellitus [Not Recovered/Not Resolved]
  - Ear pain [Recovered/Resolved]
  - Abdominal pain [Recovered/Resolved]
  - Pharyngitis [Not Recovered/Not Resolved]
  - Oropharyngeal pain [Unknown]
  - Pyrexia [Unknown]
  - Weight decreased [Recovered/Resolved]
  - Anosmia [Recovered/Resolved]
  - Pyrexia [Recovered/Resolved]
  - Rhinitis [Recovered/Resolved]
  - Decreased appetite [Recovered/Resolved]
  - Labyrinthitis [Recovering/Resolving]
  - Ear infection [Recovered/Resolved]
  - Eye pain [Recovered/Resolved]
  - Gastrointestinal disorder [Recovered/Resolved]
  - Lacrimation increased [Recovered/Resolved]
  - Product use in unapproved indication [Unknown]
  - Tinnitus [Unknown]
  - Viral infection [Recovered/Resolved]
  - Influenza [Recovered/Resolved]
  - Dizziness [Recovered/Resolved]
  - Gait disturbance [Unknown]

NARRATIVE: CASE EVENT DATE: 20190325
